FAERS Safety Report 15285436 (Version 1)
Quarter: 2018Q3

REPORT INFORMATION
  Report Type: Spontaneous
  Country: US (occurrence: US)
  Receive Date: 20180801
  Receipt Date: 20180801
  Transmission Date: 20181010
  Serious: Yes (Other)
  Sender: FDA-Public Use
  Company Number: None

PATIENT
  Age: 62 Year
  Sex: Female
  Weight: 72.57 kg

DRUGS (2)
  1. PREDNISOLONE?GATIFLOXACIN?BROMFENAC [Suspect]
     Active Substance: BROMFENAC\GATIFLOXACIN\PREDNISOLONE ACETATE
     Indication: POSTOPERATIVE CARE
     Dosage: 1%; 0.5%?0.75% BOTTLE, 4XDAILY, EYE DROPS
     Dates: start: 20180709, end: 20180715
  2. PREDNISOLONE?GATIFLOXACIN?BROMFENAC [Suspect]
     Active Substance: BROMFENAC\GATIFLOXACIN\PREDNISOLONE ACETATE
     Indication: CATARACT OPERATION
     Dosage: 1%; 0.5%?0.75% BOTTLE, 4XDAILY, EYE DROPS
     Dates: start: 20180709, end: 20180715

REACTIONS (2)
  - Product container issue [None]
  - Incorrect dose administered by device [None]

NARRATIVE: CASE EVENT DATE: 20180619
